FAERS Safety Report 12542997 (Version 11)
Quarter: 2017Q2

REPORT INFORMATION
  Report Type: Report from Study
  Country: CA (occurrence: CA)
  Receive Date: 20160710
  Receipt Date: 20170519
  Transmission Date: 20170830
  Serious: Yes (Hospitalization, Other)
  Sender: FDA-Public Use
  Company Number: PHHY2016CA083545

PATIENT
  Age: 56 Year
  Sex: Female
  Weight: 13.61 kg

DRUGS (2)
  1. DYAZIDE [Concomitant]
     Active Substance: HYDROCHLOROTHIAZIDE\TRIAMTERENE
     Indication: PRODUCT USED FOR UNKNOWN INDICATION
     Route: 065
  2. SANDOSTATIN LAR DEPOT [Suspect]
     Active Substance: OCTREOTIDE ACETATE
     Indication: CARCINOID TUMOUR
     Dosage: 30 MG, QMO (EVERY 4 WEEKS)
     Route: 030
     Dates: start: 20160608, end: 20170505

REACTIONS (26)
  - Vomiting [Recovering/Resolving]
  - Constipation [Recovering/Resolving]
  - Malaise [Recovering/Resolving]
  - Eye colour change [Unknown]
  - Oropharyngeal pain [Unknown]
  - Injection site induration [Not Recovered/Not Resolved]
  - Asthenia [Recovering/Resolving]
  - Abdominal pain [Unknown]
  - Nausea [Recovering/Resolving]
  - Erythema [Unknown]
  - Dizziness [Unknown]
  - Alopecia [Unknown]
  - Dyspnoea [Unknown]
  - Nasal congestion [Unknown]
  - Hepatic pain [Unknown]
  - Fatigue [Unknown]
  - Injection site pain [Unknown]
  - Stoma site haemorrhage [Unknown]
  - Injection site inflammation [Not Recovered/Not Resolved]
  - Hyperhidrosis [Unknown]
  - Chills [Unknown]
  - Fluid retention [Unknown]
  - Blood pressure increased [Unknown]
  - Oedema peripheral [Unknown]
  - Weight increased [Unknown]
  - Diarrhoea [Unknown]

NARRATIVE: CASE EVENT DATE: 20160608
